FAERS Safety Report 4484833-1 (Version None)
Quarter: 2004Q4

REPORT INFORMATION
  Report Type: 
  Country: None (occurrence: None)
  Receive Date: 20041025
  Receipt Date: 20041018
  Transmission Date: 20050328
  Serious: Yes (Life-Threatening, Hospitalization, Disabling)
  Sender: FDA-Public Use
  Company Number: US-MERCK-0410USA02642

PATIENT
  Age: 73 Year
  Sex: Female

DRUGS (5)
  1. VIOXX [Suspect]
     Indication: ARTHRITIS
     Route: 048
     Dates: start: 19990101, end: 20040930
  2. ASPIRIN [Concomitant]
     Route: 065
  3. LASIX [Concomitant]
     Route: 065
  4. METOLAZONE [Concomitant]
     Route: 065
  5. KLOR-CON [Concomitant]
     Route: 065

REACTIONS (7)
  - CATARACT [None]
  - DIFFICULTY IN WALKING [None]
  - HYPERTENSION [None]
  - OEDEMA PERIPHERAL [None]
  - PAIN [None]
  - SEPSIS [None]
  - URINARY TRACT INFECTION [None]
